FAERS Safety Report 8718994 (Version 2)
Quarter: 2013Q4

REPORT INFORMATION
  Report Type: Spontaneous
  Country: GB (occurrence: GB)
  Receive Date: 20120812
  Receipt Date: 20131031
  Transmission Date: 20140711
  Serious: Yes (Other)
  Sender: FDA-Public Use
  Company Number: GB-MERCK-1208GBR002481

PATIENT
  Age: 39 Year
  Sex: Male
  Weight: 80.6 kg

DRUGS (2)
  1. ZOCOR [Suspect]
     Indication: LIPIDS
     Dosage: 40 MG, UNK
     Route: 048
     Dates: start: 20120602, end: 20120622
  2. CITALOPRAM [Suspect]

REACTIONS (2)
  - Drug interaction [Recovered/Resolved]
  - Feeling abnormal [Recovered/Resolved]
